FAERS Safety Report 21251352 (Version 7)
Quarter: 2023Q1

REPORT INFORMATION
  Report Type: Spontaneous
  Country: FR (occurrence: FR)
  Receive Date: 20220825
  Receipt Date: 20230124
  Transmission Date: 20230417
  Serious: Yes (Other)
  Sender: FDA-Public Use
  Company Number: FR-GSKCCFEMEA-Case-01527741_AE-59830

PATIENT
  Age: 42 Year
  Sex: Female
  Weight: 167 kg

DRUGS (9)
  1. DESLORATADINE [Suspect]
     Active Substance: DESLORATADINE
     Indication: Product used for unknown indication
     Dosage: UNK
     Route: 065
  2. ACETAMINOPHEN [Suspect]
     Active Substance: ACETAMINOPHEN
     Indication: Product used for unknown indication
     Dosage: UNK
     Route: 065
     Dates: start: 20190509
  3. PREDNISONE [Suspect]
     Active Substance: PREDNISONE
     Indication: Product used for unknown indication
     Dosage: 9 MILLIGRAM, ONCE A DAY
     Route: 048
     Dates: start: 20190509
  4. BENLYSTA [Suspect]
     Active Substance: BELIMUMAB
     Indication: Systemic lupus erythematosus
     Dosage: UNK
     Route: 042
     Dates: end: 201904
  5. BENLYSTA [Suspect]
     Active Substance: BELIMUMAB
     Dosage: UNK
     Route: 042
     Dates: start: 201906
  6. BENLYSTA [Suspect]
     Active Substance: BELIMUMAB
     Dosage: 200 MILLIGRAM PER WEEK
     Route: 058
     Dates: start: 20190502, end: 20190509
  7. BENLYSTA [Suspect]
     Active Substance: BELIMUMAB
     Dosage: 200 MILLIGRAM PER WEEK
     Route: 058
     Dates: start: 20190928
  8. BENLYSTA [Suspect]
     Active Substance: BELIMUMAB
     Dosage: UNK
     Route: 058
     Dates: start: 20190509
  9. BENLYSTA [Suspect]
     Active Substance: BELIMUMAB
     Dosage: 200 MILLIGRAM, EVERY WEEK
     Route: 042
     Dates: start: 20190502

REACTIONS (11)
  - Abdominal pain [Recovered/Resolved]
  - Musculoskeletal pain [Recovered/Resolved]
  - Nausea [Recovered/Resolved]
  - Fatigue [Recovered/Resolved]
  - Pyrexia [Unknown]
  - Chills [Unknown]
  - Vomiting [Unknown]
  - Injection site pain [Unknown]
  - Drug tolerance decreased [Recovered/Resolved]
  - Drug intolerance [Recovered/Resolved]
  - Injection site rash [Unknown]

NARRATIVE: CASE EVENT DATE: 20190101
